FAERS Safety Report 14539289 (Version 2)
Quarter: 2019Q4

REPORT INFORMATION
  Report Type: Spontaneous
  Country: US (occurrence: US)
  Receive Date: 20180216
  Receipt Date: 20191203
  Transmission Date: 20200122
  Serious: Yes (Other)
  Sender: FDA-Public Use
  Company Number: US-UCBSA-2018005328

PATIENT
  Sex: Female

DRUGS (6)
  1. KEPPRA [Suspect]
     Active Substance: LEVETIRACETAM
     Indication: SEIZURE
     Dosage: UNK
  2. IBUPROFEN. [Concomitant]
     Active Substance: IBUPROFEN
     Indication: PRODUCT USED FOR UNKNOWN INDICATION
     Dosage: UNK, AS NEEDED (PRN)
  3. PEPCID [Concomitant]
     Active Substance: FAMOTIDINE
     Indication: DRUG REACTION WITH EOSINOPHILIA AND SYSTEMIC SYMPTOMS
     Dosage: 10 MG, ONCE DAILY (QD)
  4. VIMPAT [Suspect]
     Active Substance: LACOSAMIDE
     Indication: SEIZURE
     Dosage: 150 MG, 2X/DAY (BID)
  5. CLOBETASOL [Concomitant]
     Active Substance: CLOBETASOL
     Indication: PRODUCT USED FOR UNKNOWN INDICATION
     Dosage: 0.05 % CREAM,  2X/DAY (BID)
  6. PREDNISONE. [Concomitant]
     Active Substance: PREDNISONE
     Indication: PRODUCT USED FOR UNKNOWN INDICATION
     Dosage: 60 MG, ONCE DAILY (QD)

REACTIONS (2)
  - Liver function test increased [Not Recovered/Not Resolved]
  - Drug reaction with eosinophilia and systemic symptoms [Not Recovered/Not Resolved]
